FAERS Safety Report 9633271 (Version 3)
Quarter: 2013Q4

REPORT INFORMATION
  Report Type: Report from Study
  Country: US (occurrence: US)
  Receive Date: 20131021
  Receipt Date: 20131126
  Transmission Date: 20140711
  Serious: Yes (Life-Threatening, Hospitalization, Other)
  Sender: FDA-Public Use
  Company Number: PHEH2013US021786

PATIENT
  Age: 65 Year
  Sex: Male
  Weight: 82.99 kg

DRUGS (5)
  1. GILENYA [Suspect]
     Indication: MULTIPLE SCLEROSIS
     Dosage: 0.5 MG, QD
     Route: 048
     Dates: start: 20131015
  2. GABAPENTIN [Concomitant]
     Indication: MULTIPLE SCLEROSIS
     Dosage: 300 MG, QD
     Route: 048
  3. FISH OIL [Concomitant]
     Indication: HYPERLIPIDAEMIA
     Dosage: 1000 MG, QD
     Route: 048
  4. ZOCOR [Concomitant]
     Indication: HYPERLIPIDAEMIA
     Dosage: 20 MG, QD
     Route: 048
  5. COREG [Concomitant]
     Indication: HYPERTENSION
     Dosage: 3.125 MG, QD
     Route: 048

REACTIONS (3)
  - Ventricular tachycardia [Unknown]
  - Arrhythmia [Recovered/Resolved]
  - Heart rate increased [Unknown]
